FAERS Safety Report 16465202 (Version 1)
Quarter: 2019Q2

REPORT INFORMATION
  Report Type: Report from Study
  Country: CA (occurrence: CA)
  Receive Date: 20190621
  Receipt Date: 20190621
  Transmission Date: 20190711
  Serious: Yes (Other)
  Sender: FDA-Public Use
  Company Number: CA-UCBSA-2018054172

PATIENT
  Age: 65 Year
  Sex: Female

DRUGS (3)
  1. CIMZIA [Suspect]
     Active Substance: CERTOLIZUMAB PEGOL
     Indication: RHEUMATOID ARTHRITIS
     Dosage: 400 MG, EV 4 WEEKS
     Dates: end: 20190506
  2. CERTOLIZUMAB PEGOL [Suspect]
     Active Substance: CERTOLIZUMAB PEGOL
     Dosage: 400 MG, EV 4 WEEKS
     Route: 058
     Dates: start: 20180919
  3. CERTOLIZUMAB PEGOL [Suspect]
     Active Substance: CERTOLIZUMAB PEGOL
     Indication: RHEUMATOID ARTHRITIS
     Dosage: LOADING DOSES
     Route: 058
     Dates: start: 20180824

REACTIONS (9)
  - Migraine [Unknown]
  - Vertigo [Unknown]
  - Headache [Unknown]
  - Nausea [Unknown]
  - Urticaria [Unknown]
  - Injection site urticaria [Unknown]
  - Rash [Not Recovered/Not Resolved]
  - Injection site swelling [Unknown]
  - Injection site pain [Unknown]

NARRATIVE: CASE EVENT DATE: 2018
